FAERS Safety Report 7075155-3 (Version None)
Quarter: 2010Q4

REPORT INFORMATION
  Report Type: 
  Country: None (occurrence: None)
  Receive Date: 20101029
  Receipt Date: 20100517
  Transmission Date: 20110411
  Serious: No
  Sender: FDA-Public Use
  Company Number: US-WYE-H15016210

PATIENT
  Age: 14 Year
  Sex: Female
  Weight: 53.57 kg

DRUGS (1)
  1. ALAVERT [Suspect]
     Route: 048
     Dates: start: 20100427

REACTIONS (1)
  - DRUG EFFECT DECREASED [None]
